FAERS Safety Report 9177907 (Version 1)
Quarter: 2013Q1

REPORT INFORMATION
  Report Type: Spontaneous
  Country: US (occurrence: US)
  Receive Date: 20130321
  Receipt Date: 20130321
  Transmission Date: 20140127
  Serious: No
  Sender: FDA-Public Use
  Company Number: US-PFIZER INC-2013091810

PATIENT
  Age: 65 Year
  Sex: Male
  Weight: 103 kg

DRUGS (9)
  1. LIPITOR [Suspect]
     Indication: BLOOD CHOLESTEROL INCREASED
     Dosage: 40 MG (HALF OF 80 MG TABLET), DAILY
     Route: 048
     Dates: start: 201302
  2. LEVOTHYROXINE SODIUM [Suspect]
     Indication: THYROID DISORDER
     Dosage: 50 MG, DAILY
  3. OMEPRAZOLE [Suspect]
     Indication: DYSPEPSIA
     Dosage: 40 MG, DAILY
  4. LOVASTATIN [Suspect]
     Indication: BLOOD PRESSURE ABNORMAL
     Dosage: 25 MG, DAILY
  5. FUROSEMIDE [Suspect]
     Indication: DIURETIC THERAPY
     Dosage: 10 MG (HALF OF 20 MG TABLET), DAILY
     Route: 048
  6. ECOTRIN [Suspect]
     Indication: VASCULAR GRAFT
     Dosage: 325 MG, DAILY
  7. HUMALOG [Suspect]
     Indication: DIABETES MELLITUS
     Dosage: 6 MG, DAILY
  8. HUMALOG MIX 25 [Concomitant]
     Indication: DIABETES MELLITUS
     Dosage: 18 MG, 2X/DAY
  9. INSULIN DETEMIR [Concomitant]
     Indication: DIABETES MELLITUS
     Dosage: 24 MG, 2X/DAY

REACTIONS (3)
  - Back pain [Recovered/Resolved]
  - Weight increased [Not Recovered/Not Resolved]
  - Drug intolerance [Unknown]
